FAERS Safety Report 21530165 (Version 1)
Quarter: 2022Q4

REPORT INFORMATION
  Report Type: Report from Study
  Country: MX (occurrence: None)
  Receive Date: 20221031
  Receipt Date: 20221031
  Transmission Date: 20230113
  Serious: Yes (Hospitalization)
  Sender: FDA-Public Use
  Company Number: MX-Eisai Medical Research-EC-2022-126886

PATIENT
  Age: 64 Year
  Sex: Female

DRUGS (2)
  1. LENVIMA [Suspect]
     Active Substance: LENVATINIB
     Indication: Thyroid cancer
     Dosage: DOSE UNKNOWN
     Route: 048
     Dates: start: 20220726
  2. LENVIMA [Suspect]
     Active Substance: LENVATINIB
     Indication: Metastases to lung

REACTIONS (3)
  - Vomiting [Unknown]
  - Cough [Unknown]
  - Blood pressure systolic increased [Unknown]

NARRATIVE: CASE EVENT DATE: 20220101
